FAERS Safety Report 17427581 (Version 1)
Quarter: 2020Q1

REPORT INFORMATION
  Report Type: Report from Study
  Country: JP (occurrence: JP)
  Receive Date: 20200218
  Receipt Date: 20200218
  Transmission Date: 20200409
  Serious: Yes (Other)
  Sender: FDA-Public Use
  Company Number: JP-SUN PHARMACEUTICAL INDUSTRIES LTD-2020RR-237197

PATIENT
  Age: 65 Year
  Sex: Male

DRUGS (5)
  1. CALCIUM FOLINAT [Suspect]
     Active Substance: LEUCOVORIN CALCIUM
     Indication: OESOPHAGEAL SQUAMOUS CELL CARCINOMA
     Dosage: 200 MILLIGRAM/SQ. METER, CYCLICAL, 2-H IV INFUSION
     Route: 042
  2. OXALIPLATIN. [Suspect]
     Active Substance: OXALIPLATIN
     Indication: OESOPHAGEAL SQUAMOUS CELL CARCINOMA
     Dosage: 85 MILLIGRAM/SQ. METER, CYCLICAL,2-H IV INFUSION
     Route: 042
  3. CALCIUM FOLINAT [Suspect]
     Active Substance: LEUCOVORIN CALCIUM
     Indication: RECTAL CANCER
  4. FLUOROURACIL. [Suspect]
     Active Substance: FLUOROURACIL
     Indication: CHEMOTHERAPY
     Dosage: 400 MILLIGRAM/SQ. METER, CYCLICAL, 10-MIN IV BOLUS DOSE ON DAY1 AND 1,600 MG/M^2 OVER 2 DAYS
     Route: 042
  5. OXALIPLATIN. [Suspect]
     Active Substance: OXALIPLATIN
     Indication: RECTAL CANCER

REACTIONS (1)
  - Therapeutic product effect incomplete [Unknown]
